FAERS Safety Report 5282550-1 (Version None)
Quarter: 2007Q1

REPORT INFORMATION
  Report Type: 
  Country: None (occurrence: None)
  Receive Date: 20070326
  Receipt Date: 20070315
  Transmission Date: 20070707
  Serious: Yes (Other)
  Sender: FDA-Public Use
  Company Number: 2007BI006122

PATIENT
  Age: 44 Year
  Sex: Female
  Weight: 46.7205 kg

DRUGS (3)
  1. NATALIZUMAB [Suspect]
     Indication: MULTIPLE SCLEROSIS
     Dosage: 300 MG; QM; IV
     Route: 042
     Dates: start: 20070123
  2. TOPAMAX [Concomitant]
  3. ATIVAN [Concomitant]

REACTIONS (7)
  - BACK PAIN [None]
  - CONVULSION [None]
  - DEPRESSION [None]
  - FATIGUE [None]
  - HAND FRACTURE [None]
  - IMPAIRED WORK ABILITY [None]
  - STRESS [None]
